FAERS Safety Report 4269397-X (Version None)
Quarter: 2004Q1

REPORT INFORMATION
  Report Type: 
  Country: None (occurrence: None)
  Receive Date: 20040109
  Receipt Date: 20031224
  Transmission Date: 20041129
  Serious: Yes (Disabling)
  Sender: FDA-Public Use
  Company Number: S03-UKI-05349-01

PATIENT
  Age: 20 Year
  Sex: Female

DRUGS (2)
  1. CIPRAMIL (CITALOPRAM HYDROBROMIDE) [Suspect]
     Indication: DEPRESSION
     Dosage: 20 MG QD PO
     Route: 048
     Dates: start: 20021125
  2. MICROGYNON [Concomitant]

REACTIONS (3)
  - CHEST WALL PAIN [None]
  - HEPATIC STEATOSIS [None]
  - NAUSEA [None]
